FAERS Safety Report 20462305 (Version 5)
Quarter: 2022Q1

REPORT INFORMATION
  Report Type: Report from Study
  Country: US (occurrence: US)
  Receive Date: 20220211
  Receipt Date: 20220303
  Transmission Date: 20220423
  Serious: Yes (Death, Hospitalization)
  Sender: FDA-Public Use
  Company Number: US-PFIZER INC-202200230373

PATIENT
  Age: 58 Year
  Sex: Male
  Weight: 131.88 kg

DRUGS (4)
  1. BINIMETINIB [Suspect]
     Active Substance: BINIMETINIB
     Indication: Malignant melanoma
     Dosage: 45 MG, BID/TWICE DAILY EVERY 12 HOURS
     Route: 048
     Dates: start: 20220110, end: 20220204
  2. BELINOSTAT [Suspect]
     Active Substance: BELINOSTAT
     Indication: Malignant melanoma
     Dosage: 1000 MG/M2 INTRAVENOUSLY DAYS 1 THROUGH 5 OF 21-DAY CYCLE
     Route: 042
     Dates: start: 20220110, end: 20220204
  3. ELIQUIS [Concomitant]
     Active Substance: APIXABAN
     Indication: Deep vein thrombosis
     Dosage: UNK
     Dates: start: 2020
  4. MELOXICAM [Concomitant]
     Active Substance: MELOXICAM
     Indication: Osteoarthritis
     Dosage: UNK

REACTIONS (2)
  - Sepsis [Fatal]
  - Sepsis [Not Recovered/Not Resolved]

NARRATIVE: CASE EVENT DATE: 20220205
